FAERS Safety Report 4778063-3 (Version None)
Quarter: 2005Q3

REPORT INFORMATION
  Report Type: 
  Country: None (occurrence: None)
  Receive Date: 20050923
  Receipt Date: 20050923
  Transmission Date: 20060218
  Serious: Yes (Other)
  Sender: FDA-Public Use
  Company Number: None

PATIENT
  Sex: Male

DRUGS (1)
  1. FENTANYL [Suspect]
     Dosage: 100MCG EVERY 66 HOURS TRANSDERMAL
     Route: 062
     Dates: start: 20040419, end: 20050922

REACTIONS (1)
  - PHARMACEUTICAL PRODUCT COMPLAINT [None]
